FAERS Safety Report 7773119-5 (Version None)
Quarter: 2011Q3

REPORT INFORMATION
  Report Type: 
  Country: None (occurrence: None)
  Receive Date: 20110922
  Receipt Date: 20110113
  Transmission Date: 20111222
  Serious: No
  Sender: FDA-Public Use
  Company Number: US-ASTRAZENECA-2011SE02449

PATIENT
  Age: 515 Month
  Sex: Male

DRUGS (1)
  1. SEROQUEL [Suspect]
     Route: 048
     Dates: start: 20030918

REACTIONS (6)
  - HYPERLIPIDAEMIA [None]
  - HYPERTENSION [None]
  - DRUG DEPENDENCE [None]
  - TYPE 2 DIABETES MELLITUS [None]
  - DEPRESSION [None]
  - ANTISOCIAL PERSONALITY DISORDER [None]
